FAERS Safety Report 11244946 (Version 3)
Quarter: 2018Q2

REPORT INFORMATION
  Report Type: Spontaneous
  Country: US (occurrence: US)
  Receive Date: 20150707
  Receipt Date: 20180529
  Transmission Date: 20180711
  Serious: Yes (Hospitalization, Other)
  Sender: FDA-Public Use
  Company Number: US-DSJP-DSU-2015-120637

PATIENT

DRUGS (2)
  1. BENICAR [Suspect]
     Active Substance: OLMESARTAN MEDOXOMIL
     Indication: HYPERTENSION
     Dosage: 20 MG, UNK
     Dates: start: 2002, end: 2004
  2. BENICAR HCT [Suspect]
     Active Substance: HYDROCHLOROTHIAZIDE\OLMESARTAN MEDOXOMIL
     Indication: HYPERTENSION
     Dosage: 40-12.5MG 1 TAB QD
     Dates: start: 2004, end: 2012

REACTIONS (17)
  - Kidney infection [Unknown]
  - Dysphagia [Unknown]
  - Colectomy [Unknown]
  - Renal failure [Unknown]
  - Large intestinal polypectomy [Unknown]
  - Diverticulitis [Unknown]
  - Irritable bowel syndrome [Not Recovered/Not Resolved]
  - Renal cyst [Unknown]
  - Gastrointestinal surgery [Unknown]
  - Intestinal resection [Unknown]
  - Hiatus hernia [Unknown]
  - Gastrooesophageal reflux disease [Unknown]
  - Abdominal hernia [Unknown]
  - Dizziness [Unknown]
  - Sprue-like enteropathy [Not Recovered/Not Resolved]
  - Diverticulum [Unknown]
  - Hepatic cyst [Unknown]

NARRATIVE: CASE EVENT DATE: 20020809
